FAERS Safety Report 20126141 (Version 1)
Quarter: 2021Q4

REPORT INFORMATION
  Report Type: Spontaneous
  Country: CA (occurrence: CA)
  Receive Date: 20211129
  Receipt Date: 20211129
  Transmission Date: 20220303
  Serious: Yes (Other)
  Sender: FDA-Public Use
  Company Number: CA-JNJFOC-20211157754

PATIENT
  Age: 52 Year
  Sex: Female
  Weight: 62 kg

DRUGS (1)
  1. REMICADE [Suspect]
     Active Substance: INFLIXIMAB
     Indication: Crohn^s disease
     Route: 042

REACTIONS (12)
  - Uveitis [Unknown]
  - Pyoderma gangrenosum [Unknown]
  - Anal fissure [Unknown]
  - Aphthous ulcer [Unknown]
  - Erythema nodosum [Unknown]
  - Weight decreased [Unknown]
  - Anaemia [Unknown]
  - Abscess [Unknown]
  - Arthralgia [Unknown]
  - Condition aggravated [Unknown]
  - Inappropriate schedule of product administration [Unknown]
  - Off label use [Unknown]
